FAERS Safety Report 23185497 (Version 7)
Quarter: 2024Q2

REPORT INFORMATION
  Report Type: Report from Study
  Country: US (occurrence: US)
  Receive Date: 20231115
  Receipt Date: 20240611
  Transmission Date: 20240716
  Serious: Yes (Other)
  Sender: FDA-Public Use
  Company Number: US-002147023-NVSC2023US240432

PATIENT
  Age: 52 Year
  Sex: Female

DRUGS (1)
  1. KYMRIAH [Suspect]
     Active Substance: TISAGENLECLEUCEL
     Indication: Primary mediastinal large B-cell lymphoma
     Dosage: UNK, ONCE/SINGLE
     Route: 042

REACTIONS (5)
  - Second primary malignancy [Unknown]
  - Large granular lymphocytosis [Unknown]
  - Primary mediastinal large B-cell lymphoma [Unknown]
  - Malignant neoplasm progression [Unknown]
  - Cytokine release syndrome [Unknown]
